FAERS Safety Report 21992492 (Version 1)
Quarter: 2023Q1

REPORT INFORMATION
  Report Type: Spontaneous
  Country: US (occurrence: US)
  Receive Date: 20230215
  Receipt Date: 20230215
  Transmission Date: 20230417
  Serious: No
  Sender: FDA-Public Use
  Company Number: US-ABBVIE-4296599

PATIENT
  Sex: Female
  Weight: 73 kg

DRUGS (2)
  1. HUMIRA [Suspect]
     Active Substance: ADALIMUMAB
     Indication: Rheumatoid arthritis
     Dosage: START DATE 2022
     Route: 058
  2. moderna [Concomitant]
     Indication: COVID-19 immunisation
     Dosage: ONCE
     Route: 030
     Dates: start: 202208, end: 202208

REACTIONS (4)
  - Sinusitis [Recovered/Resolved]
  - Exposure to communicable disease [Unknown]
  - Tuberculin test positive [Unknown]
  - Device issue [Unknown]

NARRATIVE: CASE EVENT DATE: 20220101
